FAERS Safety Report 5685249-2 (Version None)
Quarter: 2008Q1

REPORT INFORMATION
  Report Type: 
  Country: None (occurrence: None)
  Receive Date: 20080328
  Receipt Date: 20080318
  Transmission Date: 20080703
  Serious: Yes (Hospitalization)
  Sender: FDA-Public Use
  Company Number: IT-GENENTECH-258323

PATIENT
  Sex: Male
  Weight: 100 kg

DRUGS (2)
  1. RITUXIMAB [Suspect]
     Indication: CHRONIC LYMPHOCYTIC LEUKAEMIA
     Dosage: 750 MG, UNK
     Route: 042
     Dates: start: 20071123, end: 20071123
  2. CYCLOFOSFAMIDE [Suspect]
     Indication: CHRONIC LYMPHOCYTIC LEUKAEMIA
     Dosage: 14 G, UNK
     Route: 042
     Dates: start: 20071120, end: 20071120

REACTIONS (1)
  - FEBRILE NEUTROPENIA [None]
